FAERS Safety Report 25337154 (Version 1)
Quarter: 2025Q2

REPORT INFORMATION
  Report Type: Spontaneous
  Country: IT (occurrence: IT)
  Receive Date: 20250520
  Receipt Date: 20250520
  Transmission Date: 20250716
  Serious: Yes (Hospitalization, Other)
  Sender: BIOVITRUM
  Company Number: IT-BIOVITRUM-2025-IT-006898

PATIENT
  Age: 6 Month
  Sex: Male

DRUGS (1)
  1. GAMIFANT [Suspect]
     Active Substance: EMAPALUMAB-LZSG
     Indication: Familial haemophagocytic lymphohistiocytosis

REACTIONS (1)
  - Seizure [Unknown]
